FAERS Safety Report 19589826 (Version 1)
Quarter: 2021Q3

REPORT INFORMATION
  Report Type: Report from Study
  Country: FR (occurrence: FR)
  Receive Date: 20210721
  Receipt Date: 20210721
  Transmission Date: 20211014
  Serious: Yes (Life-Threatening, Hospitalization, Other)
  Sender: FDA-Public Use
  Company Number: FR-TAKEDA-2021TUS043983

PATIENT
  Age: 17 Year
  Sex: Male

DRUGS (8)
  1. TEDUGLUTIDE [Suspect]
     Active Substance: TEDUGLUTIDE
     Indication: SHORT-BOWEL SYNDROME
     Dosage: 2.4 MILLIGRAM (0.05 MG/KG DAILY DOSE), 7 DOSES PER WEEK
     Route: 065
     Dates: start: 20180817, end: 20190624
  2. AMIKLIN [Concomitant]
     Active Substance: AMIKACIN SULFATE
     Indication: INFECTION
     Dosage: 15 MILLIGRAM/KILOGRAM, ONE DOSE
     Route: 042
     Dates: start: 20200223, end: 20200223
  3. TAZOCILLINE [Concomitant]
     Active Substance: PIPERACILLIN SODIUM\TAZOBACTAM SODIUM
     Indication: INFECTION
     Dosage: 4 GRAM
     Route: 042
     Dates: start: 20200223, end: 20200228
  4. TEDUGLUTIDE [Suspect]
     Active Substance: TEDUGLUTIDE
     Indication: SHORT-BOWEL SYNDROME
     Dosage: 2.4 MILLIGRAM (0.05 MG/KG DAILY DOSE), 7 DOSES PER WEEK
     Route: 065
     Dates: start: 20180817, end: 20190624
  5. MORPHINE [Concomitant]
     Active Substance: MORPHINE
     Indication: PAIN
     Dosage: 30 MILLIGRAM/KILOGRAM
     Route: 042
     Dates: start: 20200222, end: 20200228
  6. TEDUGLUTIDE [Suspect]
     Active Substance: TEDUGLUTIDE
     Indication: SHORT-BOWEL SYNDROME
     Dosage: 2.4 MILLIGRAM (0.05 MG/KG DAILY DOSE), 7 DOSES PER WEEK
     Route: 065
     Dates: start: 20180817, end: 20190624
  7. ACUPAN [Concomitant]
     Active Substance: NEFOPAM HYDROCHLORIDE
     Indication: GAIT DISTURBANCE
     Dosage: 20 MILLIGRAM
     Route: 042
     Dates: start: 202002, end: 202003
  8. TEDUGLUTIDE [Suspect]
     Active Substance: TEDUGLUTIDE
     Indication: SHORT-BOWEL SYNDROME
     Dosage: 2.4 MILLIGRAM (0.05 MG/KG DAILY DOSE), 7 DOSES PER WEEK
     Route: 065
     Dates: start: 20180817, end: 20190624

REACTIONS (1)
  - Gastrointestinal haemorrhage [Recovered/Resolved]

NARRATIVE: CASE EVENT DATE: 20200705
